FAERS Safety Report 7930564-2 (Version None)
Quarter: 2011Q4

REPORT INFORMATION
  Report Type: 
  Country: None (occurrence: None)
  Receive Date: 20111121
  Receipt Date: 20100101
  Transmission Date: 20120403
  Serious: Yes (Death)
  Sender: FDA-Public Use
  Company Number: US-ROCHE-677889

PATIENT

DRUGS (3)
  1. HERCEPTIN [Suspect]
     Indication: BREAST CANCER METASTATIC
     Dosage: THIS IS THE LOADING DOSE. FREQ: 90 MIN OVER DAY ONE.
     Route: 042
  2. AVASTIN [Suspect]
     Indication: BREAST CANCER METASTATIC
     Route: 042
  3. HERCEPTIN [Suspect]
     Dosage: CYCLE: 3 WEEKS
     Route: 042

REACTIONS (1)
  - DEVICE RELATED INFECTION [None]
